FAERS Safety Report 4480556-3 (Version None)
Quarter: 2004Q4

REPORT INFORMATION
  Report Type: 
  Country: None (occurrence: None)
  Receive Date: 20041019
  Receipt Date: 20041008
  Transmission Date: 20050328
  Serious: Yes (Hospitalization)
  Sender: FDA-Public Use
  Company Number: 2004UW19607

PATIENT
  Sex: Female

DRUGS (2)
  1. SEROQUEL [Suspect]
     Dosage: 25 MG BID PO
     Route: 048
  2. SEROQUEL [Suspect]
     Dosage: 100 MG HS PO
     Route: 048

REACTIONS (1)
  - SUICIDE ATTEMPT [None]
